FAERS Safety Report 20017162 (Version 2)
Quarter: 2021Q4

REPORT INFORMATION
  Report Type: Spontaneous
  Country: PT (occurrence: PT)
  Receive Date: 20211030
  Receipt Date: 20211207
  Transmission Date: 20220303
  Serious: Yes (Life-Threatening, Hospitalization, Other)
  Sender: FDA-Public Use
  Company Number: PT-MLMSERVICE-20211015-3171171-1

PATIENT
  Age: 37 Year
  Sex: Male

DRUGS (1)
  1. ALLOPURINOL [Suspect]
     Active Substance: ALLOPURINOL
     Indication: Gout

REACTIONS (9)
  - Renal infarct [Recovered/Resolved]
  - Hallucination, auditory [Recovered/Resolved]
  - Drug reaction with eosinophilia and systemic symptoms [Recovered/Resolved]
  - Hallucination, visual [Recovered/Resolved]
  - Human herpesvirus 6 infection reactivation [Recovered/Resolved]
  - Hyperbilirubinaemia [Recovered/Resolved]
  - Confusional state [Recovered/Resolved]
  - Acute kidney injury [Recovered/Resolved]
  - Anaemia [Unknown]
